FAERS Safety Report 12678279 (Version 1)
Quarter: 2016Q3

REPORT INFORMATION
  Report Type: Report from Study
  Country: US (occurrence: US)
  Receive Date: 20160823
  Receipt Date: 20160823
  Transmission Date: 20161109
  Serious: Yes (Death, Other)
  Sender: FDA-Public Use
  Company Number: US-ABBVIE-16K-163-1706221-00

PATIENT
  Age: 64 Year
  Sex: Male

DRUGS (1)
  1. HUMIRA [Suspect]
     Active Substance: ADALIMUMAB
     Indication: ANKYLOSING SPONDYLITIS
     Route: 058
     Dates: start: 20150916, end: 20160606

REACTIONS (8)
  - Weight decreased [Fatal]
  - Rash [Recovered/Resolved]
  - Post procedural complication [Fatal]
  - Benign neoplasm [Unknown]
  - Peripheral swelling [Recovered/Resolved]
  - Benign pancreatic neoplasm [Unknown]
  - Erythema [Recovered/Resolved]
  - Personality change [Not Recovered/Not Resolved]

NARRATIVE: CASE EVENT DATE: 20150916
